FAERS Safety Report 9840703 (Version 2)
Quarter: 2014Q1

REPORT INFORMATION
  Report Type: Report from Study
  Country: DE (occurrence: DE)
  Receive Date: 20140124
  Receipt Date: 20140124
  Transmission Date: 20141002
  Serious: No
  Sender: FDA-Public Use
  Company Number: PHHY2012DE107119

PATIENT
  Sex: Female

DRUGS (10)
  1. AMN107 [Suspect]
     Indication: CHRONIC MYELOID LEUKAEMIA
     Dosage: 600 MG, PER DAY
     Route: 048
     Dates: start: 20120622
  2. BISOPROLOL HCT [Concomitant]
     Dosage: 5 MG, UNK
  3. ALLOPURINOL [Concomitant]
     Dates: start: 20120620
  4. FALITHROM [Concomitant]
     Dates: start: 20120619
  5. VALSARTAN [Concomitant]
     Dosage: 160 MG, UNK
  6. VALSARTAN [Concomitant]
     Dosage: 320 MG, UNK
     Dates: start: 20130311
  7. PREDNISOLON [Concomitant]
     Dates: start: 20121214, end: 20130114
  8. PREDNISOLON [Concomitant]
     Dates: start: 20130115, end: 20130311
  9. PREDNISOLON [Concomitant]
     Dates: start: 20130312, end: 20140107
  10. PREDNISOLON [Concomitant]
     Dates: start: 20140108

REACTIONS (5)
  - Hair disorder [Not Recovered/Not Resolved]
  - Alopecia [Not Recovered/Not Resolved]
  - Musculoskeletal discomfort [Recovered/Resolved]
  - Pain in extremity [Not Recovered/Not Resolved]
  - Gait disturbance [Not Recovered/Not Resolved]
